FAERS Safety Report 8431574-1 (Version None)
Quarter: 2012Q2

REPORT INFORMATION
  Report Type: 
  Country: None (occurrence: None)
  Receive Date: 20120607
  Receipt Date: 20120607
  Transmission Date: 20120825
  Serious: Yes (Life-Threatening)
  Sender: FDA-Public Use
  Company Number: None

PATIENT
  Age: 56 Year
  Sex: Male
  Weight: 62.5964 kg

DRUGS (1)
  1. INCIVEK [Suspect]
     Indication: HEPATITIS C
     Dosage: 375 MG 2-3TIMES A DAY MOUTH; MARCH-MAY

REACTIONS (9)
  - SKIN LESION [None]
  - SWOLLEN TONGUE [None]
  - GAIT DISTURBANCE [None]
  - BLISTER [None]
  - RASH [None]
  - SWELLING FACE [None]
  - PRURITUS [None]
  - DYSPNOEA [None]
  - STOMATITIS [None]
